FAERS Safety Report 25183904 (Version 1)
Quarter: 2025Q2

REPORT INFORMATION
  Report Type: Spontaneous
  Country: US (occurrence: None)
  Receive Date: 20250409
  Receipt Date: 20250409
  Transmission Date: 20250717
  Serious: Yes (Hospitalization)
  Sender: FDA-CTU
  Company Number: None

PATIENT
  Age: 26 Year
  Sex: Female
  Weight: 104 kg

DRUGS (1)
  1. ARMODAFINIL [Suspect]
     Active Substance: ARMODAFINIL
     Indication: Depression
     Route: 048
     Dates: start: 20250115, end: 20250115

REACTIONS (3)
  - Hypersensitivity [None]
  - Anaphylactic reaction [None]
  - Chest pain [None]

NARRATIVE: CASE EVENT DATE: 20250122
